FAERS Safety Report 7833227-7 (Version None)
Quarter: 2011Q4

REPORT INFORMATION
  Report Type: 
  Country: None (occurrence: None)
  Receive Date: 20111024
  Receipt Date: 20111018
  Transmission Date: 20120403
  Serious: Yes (Other)
  Sender: FDA-Public Use
  Company Number: US-PFIZER INC-2011251082

PATIENT
  Sex: Male
  Weight: 63 kg

DRUGS (4)
  1. DEPAKOTE [Concomitant]
     Indication: EPILEPSY
     Dosage: UNK
  2. DILANTIN [Suspect]
     Indication: CONVULSION
     Dosage: UNK
     Route: 048
  3. DILANTIN [Suspect]
     Indication: EPILEPSY
  4. LAMICTAL [Concomitant]
     Indication: EPILEPSY
     Dosage: UNK

REACTIONS (6)
  - ACTIVITIES OF DAILY LIVING IMPAIRED [None]
  - PARALYSIS [None]
  - SPEECH DISORDER [None]
  - CONVULSION [None]
  - UNRESPONSIVE TO STIMULI [None]
  - ANTICONVULSANT DRUG LEVEL DECREASED [None]
